FAERS Safety Report 23204684 (Version 1)
Quarter: 2023Q4

REPORT INFORMATION
  Report Type: Other
  Country: MX (occurrence: None)
  Receive Date: 20231120
  Receipt Date: 20231120
  Transmission Date: 20240110
  Serious: Yes (Other)
  Sender: FDA-Public Use
  Company Number: MX-ROCHE-3460231

PATIENT
  Sex: Female
  Weight: 89 kg

DRUGS (1)
  1. OCREVUS [Suspect]
     Active Substance: OCRELIZUMAB
     Indication: Multiple sclerosis
     Route: 042
     Dates: start: 20230530

REACTIONS (3)
  - Weight decreased [Recovering/Resolving]
  - Inflammation [Recovering/Resolving]
  - Multiple injuries [Recovering/Resolving]
